FAERS Safety Report 9791429 (Version 1)
Quarter: 2014Q1

REPORT INFORMATION
  Report Type: Spontaneous
  Country: JP (occurrence: JP)
  Receive Date: 20140101
  Receipt Date: 20140101
  Transmission Date: 20141002
  Serious: Yes (Hospitalization)
  Sender: FDA-Public Use
  Company Number: PHHY2013JP152959

PATIENT
  Sex: 0

DRUGS (2)
  1. SANDOSTATIN [Suspect]
     Indication: GASTROINTESTINAL OBSTRUCTION
     Dosage: UNK UKN, UNK
     Route: 058
  2. SANDOSTATIN [Suspect]
     Indication: OFF LABEL USE

REACTIONS (1)
  - General physical health deterioration [Unknown]
